FAERS Safety Report 23572732 (Version 3)
Quarter: 2024Q2

REPORT INFORMATION
  Report Type: Spontaneous
  Country: US (occurrence: US)
  Receive Date: 20240227
  Receipt Date: 20240520
  Transmission Date: 20240716
  Serious: No
  Sender: FDA-Public Use
  Company Number: US-KARYOPHARM-2024KPT000090

PATIENT

DRUGS (11)
  1. XPOVIO [Suspect]
     Active Substance: SELINEXOR
     Indication: Brain neoplasm malignant
     Dosage: 80 MG, WEEKLY
     Route: 048
     Dates: start: 20230519
  2. XPOVIO [Suspect]
     Active Substance: SELINEXOR
     Dosage: UNK
  3. ZOFRAN [Concomitant]
     Active Substance: ONDANSETRON HYDROCHLORIDE
  4. BENZONATATE [Concomitant]
     Active Substance: BENZONATATE
  5. IBUPROFEN [Concomitant]
     Active Substance: IBUPROFEN
  6. PANTOPRAZOLE [Concomitant]
     Active Substance: PANTOPRAZOLE
  7. SUCRALFATE [Concomitant]
     Active Substance: SUCRALFATE
  8. LEVETIRACETAM [Concomitant]
     Active Substance: LEVETIRACETAM
  9. FAMOTIDINE [Concomitant]
     Active Substance: FAMOTIDINE
  10. BEVACIZUMAB [Concomitant]
     Active Substance: BEVACIZUMAB
  11. PREGABALIN [Concomitant]
     Active Substance: PREGABALIN

REACTIONS (12)
  - Hypersomnia [Unknown]
  - Malaise [Unknown]
  - Gingival bleeding [Unknown]
  - Cough [Recovering/Resolving]
  - Rhinorrhoea [Recovering/Resolving]
  - Nasopharyngitis [Recovering/Resolving]
  - Nausea [Not Recovered/Not Resolved]
  - Constipation [Unknown]
  - Decreased appetite [Not Recovered/Not Resolved]
  - Fatigue [Not Recovered/Not Resolved]
  - Product dose omission issue [Unknown]
  - Off label use [Unknown]

NARRATIVE: CASE EVENT DATE: 20231221
